FAERS Safety Report 6920274-2 (Version None)
Quarter: 2010Q3

REPORT INFORMATION
  Report Type: 
  Country: None (occurrence: None)
  Receive Date: 20100811
  Receipt Date: 20100803
  Transmission Date: 20110219
  Serious: Yes (Hospitalization)
  Sender: FDA-Public Use
  Company Number: US-AMGEN-QUU424274

PATIENT
  Sex: Female

DRUGS (2)
  1. ENBREL [Suspect]
     Indication: RHEUMATOID ARTHRITIS
     Route: 058
     Dates: start: 20080101
  2. CELEBREX [Concomitant]

REACTIONS (8)
  - CELLULITIS [None]
  - DEVICE RELATED INFECTION [None]
  - GASTROINTESTINAL HAEMORRHAGE [None]
  - INCREASED TENDENCY TO BRUISE [None]
  - JOINT DISLOCATION [None]
  - JOINT SWELLING [None]
  - PAIN [None]
  - SEPSIS [None]
